FAERS Safety Report 4837103-3 (Version None)
Quarter: 2005Q4

REPORT INFORMATION
  Report Type: 
  Country: None (occurrence: None)
  Receive Date: 20051121
  Receipt Date: 20051121
  Transmission Date: 20060501
  Serious: Yes (Hospitalization, Other)
  Sender: FDA-Public Use
  Company Number: None

PATIENT
  Sex: Female
  Weight: 106.9 kg

DRUGS (4)
  1. IRINOTECAN CPT-11 CAMPTOSAR) [Suspect]
     Indication: GLIOBLASTOMA MULTIFORME
     Dosage: SEE IMAGE
     Dates: start: 20051020, end: 20051020
  2. TEMOZOLOMIDE [Suspect]
     Dosage: SEE IMAGE
     Dates: start: 20051021, end: 20051025
  3. DEXAMETHASONE [Concomitant]
  4. LOVENOX [Concomitant]

REACTIONS (4)
  - CATHETER RELATED INFECTION [None]
  - ESCHERICHIA BACTERAEMIA [None]
  - PURULENT DISCHARGE [None]
  - WOUND INFECTION STAPHYLOCOCCAL [None]
